FAERS Safety Report 8767528 (Version 2)
Quarter: 2012Q4

REPORT INFORMATION
  Report Type: 
  Country: US (occurrence: US)
  Receive Date: 20120904
  Receipt Date: 20121107
  Transmission Date: 20130627
  Serious: Yes (Other)
  Sender: FDA-Public Use
  Company Number: US-ACTELION-A-US2011-52479

PATIENT
  Age: 74 Year
  Sex: Female

DRUGS (3)
  1. TRACLEER [Suspect]
     Indication: PULMONARY ARTERIAL HYPERTENSION
     Dosage: UNK
     Route: 048
     Dates: start: 20110715
  2. ADCIRCA [Concomitant]
  3. COUMADIN [Concomitant]

REACTIONS (3)
  - Knee arthroplasty [Recovered/Resolved with Sequelae]
  - Rheumatoid arthritis [Unknown]
  - Pain [Unknown]
